FAERS Safety Report 14993917 (Version 1)
Quarter: 2018Q2

REPORT INFORMATION
  Report Type: Spontaneous
  Country: ES (occurrence: ES)
  Receive Date: 20180611
  Receipt Date: 20180611
  Transmission Date: 20180711
  Serious: Yes (Life-Threatening, Hospitalization)
  Sender: FDA-Public Use
  Company Number: ES-TEVA-2018-ES-904625

PATIENT
  Age: 64 Year
  Sex: Male

DRUGS (5)
  1. AKINETON [Concomitant]
     Active Substance: BIPERIDEN HYDROCHLORIDE
     Indication: SCHIZOPHRENIA
     Dosage: 4 MILLIGRAM DAILY;
     Route: 048
     Dates: start: 20160615, end: 20180311
  2. DIAZEPAM (730A) [Interacting]
     Active Substance: DIAZEPAM
     Indication: MUSCULOSKELETAL PAIN
     Dosage: 10 MILLIGRAM DAILY;
     Route: 048
     Dates: start: 20180309, end: 20180311
  3. ARKETIN 6 MG COMPRIMIDOS RECUBIERTOS CON PELICULA EFG , 30 COMPRIMIDOS [Interacting]
     Active Substance: RISPERIDONE
     Indication: SCHIZOPHRENIA
     Dosage: 6 MILLIGRAM DAILY;
     Route: 048
     Dates: start: 20160615, end: 20180311
  4. PAROXETINA (2586A) [Suspect]
     Active Substance: PAROXETINE
     Indication: SCHIZOPHRENIA
     Dosage: 20 MILLIGRAM DAILY;
     Route: 048
     Dates: start: 20160615, end: 20180311
  5. QUETIAPINA (1136A) [Interacting]
     Active Substance: QUETIAPINE
     Indication: SCHIZOPHRENIA
     Dosage: 700 MILLIGRAM DAILY;
     Route: 048
     Dates: start: 20160615, end: 20180311

REACTIONS (2)
  - Coma [Recovered/Resolved]
  - Drug interaction [Unknown]

NARRATIVE: CASE EVENT DATE: 20180311
